FAERS Safety Report 14642879 (Version 2)
Quarter: 2018Q1

REPORT INFORMATION
  Report Type: Spontaneous
  Country: DE (occurrence: DE)
  Receive Date: 20180315
  Receipt Date: 20180326
  Transmission Date: 20180509
  Serious: Yes (Hospitalization, Other)
  Sender: FDA-Public Use
  Company Number: DE-ASCEND THERAPEUTICS-2043853

PATIENT
  Age: 67 Year
  Sex: Female

DRUGS (4)
  1. UTROGESTAN [Suspect]
     Active Substance: PROGESTERONE
     Route: 065
     Dates: start: 200701, end: 20171229
  2. LEGALON (SILYBUM MARIANUM) [Concomitant]
     Route: 065
  3. BISOPROLOL (BISOPROLOL) [Concomitant]
     Active Substance: BISOPROLOL
     Route: 048
  4. ESTROGEL [Suspect]
     Active Substance: ESTRADIOL
     Indication: MENOPAUSAL SYMPTOMS
     Route: 062
     Dates: start: 200701, end: 20171229

REACTIONS (8)
  - Gait disturbance [Not Recovered/Not Resolved]
  - Endometrial thickening [Recovered/Resolved]
  - Muscular weakness [Not Recovered/Not Resolved]
  - Hepatocellular carcinoma [Recovered/Resolved with Sequelae]
  - Contraindicated product administered [None]
  - Memory impairment [Not Recovered/Not Resolved]
  - Disturbance in attention [Not Recovered/Not Resolved]
  - Urinary incontinence [Not Recovered/Not Resolved]

NARRATIVE: CASE EVENT DATE: 2007
